FAERS Safety Report 7898652-7 (Version None)
Quarter: 2011Q4

REPORT INFORMATION
  Report Type: 
  Country: None (occurrence: None)
  Receive Date: 20111107
  Receipt Date: 20111101
  Transmission Date: 20120403
  Serious: Yes (Hospitalization, Other)
  Sender: FDA-Public Use
  Company Number: US-AMGEN-USASP2011051660

PATIENT
  Age: 49 Year
  Sex: Female
  Weight: 127.89 kg

DRUGS (23)
  1. ATIVAN [Concomitant]
     Indication: INSOMNIA
     Dosage: UNK MG, QHS
  2. FOLTX [Concomitant]
     Dosage: 1 DF, QD
     Route: 048
  3. PERCOCET [Concomitant]
     Indication: PAIN
     Dosage: 1 DF, UNK
     Route: 048
  4. SYNTHROID [Concomitant]
     Route: 048
  5. VALIUM [Concomitant]
     Indication: ANXIETY
     Dosage: 5 MG, PRN
     Route: 048
  6. MULTI-VITAMINS [Concomitant]
  7. XANAX [Concomitant]
     Indication: ANXIETY
     Dosage: 0.25 MG, PRN
     Route: 048
  8. DANAZOL [Concomitant]
     Indication: IDIOPATHIC THROMBOCYTOPENIC PURPURA
     Dosage: 50 MG, BID
     Route: 048
  9. NEXIUM [Concomitant]
     Dosage: 40 MG, QD
     Route: 048
  10. KEFLEX                             /00145502/ [Concomitant]
     Dosage: 500 MG, TID
     Route: 048
  11. PRILOSEC [Concomitant]
     Dosage: 20 MG, QD
     Route: 048
  12. NPLATE [Suspect]
     Indication: IDIOPATHIC THROMBOCYTOPENIC PURPURA
     Dosage: 875 MUG, UNK
     Route: 058
     Dates: start: 20110407, end: 20110720
  13. VITAMIN D                          /00318501/ [Concomitant]
     Dosage: 2000 UNIT, QD
     Route: 048
  14. FAMOTIDINE [Concomitant]
     Dosage: 40 MG, UNK
  15. PROMETHAZINE HCL [Concomitant]
     Dosage: 1 DF, PRN
     Route: 048
  16. LEVAQUIN [Concomitant]
     Dosage: 500 MG, QD
     Route: 048
  17. DIPHENHYDRAMINE HCL [Concomitant]
     Dosage: 25 MG, UNK
  18. ACETAMINOPHEN [Concomitant]
     Dosage: 1000 MG, UNK
  19. RITUXIMAB [Concomitant]
     Indication: IDIOPATHIC THROMBOCYTOPENIC PURPURA
     Dosage: UNK
  20. CYCLOSPORINE [Concomitant]
     Indication: ANAEMIA
     Dosage: 25 MG, BID
     Route: 048
  21. CIPRO                              /00697202/ [Concomitant]
     Dosage: 500 MG, QD
     Route: 048
  22. FLEXERIL [Concomitant]
     Dosage: 1 DF, Q8H
     Route: 048
  23. PROZAC [Concomitant]
     Dosage: 40 MG, QD
     Route: 048

REACTIONS (24)
  - NAUSEA [None]
  - NIGHT SWEATS [None]
  - DYSPNOEA [None]
  - VOMITING [None]
  - PANCYTOPENIA [None]
  - BACK PAIN [None]
  - DYSGEUSIA [None]
  - ANXIETY [None]
  - DEPRESSED MOOD [None]
  - PYREXIA [None]
  - DIARRHOEA [None]
  - ANAEMIA [None]
  - DRUG INEFFECTIVE [None]
  - INSOMNIA [None]
  - GINGIVAL BLEEDING [None]
  - RETCHING [None]
  - STAPHYLOCOCCAL INFECTION [None]
  - NEUTROPENIA [None]
  - ASTHENIA [None]
  - POLLAKIURIA [None]
  - CHILLS [None]
  - COUGH [None]
  - OEDEMA PERIPHERAL [None]
  - DECREASED APPETITE [None]
